FAERS Safety Report 6115951-X (Version None)
Quarter: 2009Q1

REPORT INFORMATION
  Report Type: 
  Country: None (occurrence: None)
  Receive Date: 20090314
  Receipt Date: 20081217
  Transmission Date: 20090719
  Serious: No
  Sender: FDA-Public Use
  Company Number: PR-ABBOTT-08P-131-0494104-00

PATIENT
  Sex: Female
  Weight: 71.732 kg

DRUGS (9)
  1. HUMIRA [Suspect]
     Indication: RHEUMATOID ARTHRITIS
     Dosage: 1 PEN EOW
     Route: 058
  2. SULAR [Concomitant]
     Indication: HYPERTENSION
     Dosage: 1 TABLET DAILY IN AM
     Route: 048
  3. CYMBALTA [Concomitant]
     Indication: DEPRESSION
     Dosage: AS NEEDED
     Route: 048
  4. METHOTREXATE [Concomitant]
     Indication: RHEUMATOID ARTHRITIS
     Route: 048
  5. PREDNISONE [Concomitant]
     Indication: RHEUMATOID ARTHRITIS
     Dosage: 10 MG TOTAL DAILY DOSE
     Route: 048
  6. CALTRATE [Concomitant]
     Indication: NUTRITIONAL SUPPORT
     Route: 048
  7. LOVAZA [Concomitant]
     Indication: NUTRITIONAL SUPPORT
     Route: 048
  8. VIT B 12 [Concomitant]
     Indication: NUTRITIONAL SUPPORT
     Dosage: AS NEEDED
     Route: 048
  9. XANAX [Concomitant]
     Indication: DEPRESSION
     Dosage: 1 - 2MG TABLET AS NEEDED
     Route: 048

REACTIONS (2)
  - RASH MACULAR [None]
  - SKIN DISCOLOURATION [None]
